FAERS Safety Report 21373892 (Version 3)
Quarter: 2022Q4

REPORT INFORMATION
  Report Type: Report from Study
  Country: IN (occurrence: IN)
  Receive Date: 20220926
  Receipt Date: 20221122
  Transmission Date: 20230113
  Serious: Yes (Other)
  Sender: FDA-Public Use
  Company Number: IN-002147023-NVSC2022IN207164

PATIENT
  Age: 47 Year
  Sex: Female

DRUGS (4)
  1. ERENUMAB [Suspect]
     Active Substance: ERENUMAB
     Indication: Migraine
     Dosage: 70 MG, QMO (1ST DOSE)
     Route: 058
     Dates: start: 20220716
  2. ERENUMAB [Suspect]
     Active Substance: ERENUMAB
     Dosage: 70 MG, QMO (2ND DOSE)
     Route: 058
     Dates: start: 20220816
  3. ERENUMAB [Suspect]
     Active Substance: ERENUMAB
     Dosage: 70 MG, QMO (3RD DOSE)
     Route: 058
     Dates: start: 20220916
  4. ERENUMAB [Suspect]
     Active Substance: ERENUMAB
     Dosage: 70 MILLIGRAM
     Route: 058

REACTIONS (4)
  - Epilepsy [Unknown]
  - Loss of consciousness [Recovered/Resolved]
  - Drug ineffective [Unknown]
  - Migraine [Not Recovered/Not Resolved]
